FAERS Safety Report 21289492 (Version 1)
Quarter: 2022Q3

REPORT INFORMATION
  Report Type: Spontaneous
  Country: FI (occurrence: FI)
  Receive Date: 20220902
  Receipt Date: 20220902
  Transmission Date: 20221027
  Serious: Yes (Life-Threatening)
  Sender: FDA-Public Use
  Company Number: None

PATIENT
  Age: 34 Year
  Sex: Male

DRUGS (1)
  1. PREGABALIN [Suspect]
     Active Substance: PREGABALIN
     Indication: Neuralgia
     Dosage: CAPSULE HARD, 450 MG, DAILY
     Route: 048
     Dates: start: 20220601, end: 20220727

REACTIONS (8)
  - Self-injurious ideation [Recovering/Resolving]
  - Fear [Recovering/Resolving]
  - Drug withdrawal syndrome [Recovering/Resolving]
  - Depression [Recovering/Resolving]
  - Drug withdrawal headache [Recovering/Resolving]
  - Anxiety [Recovering/Resolving]
  - Pyrexia [Recovering/Resolving]
  - Chills [Recovering/Resolving]

NARRATIVE: CASE EVENT DATE: 20220728
